FAERS Safety Report 5041505-2 (Version None)
Quarter: 2006Q2

REPORT INFORMATION
  Report Type: 
  Country: None (occurrence: None)
  Receive Date: 20060627
  Receipt Date: 20060614
  Transmission Date: 20061013
  Serious: Yes (Other)
  Sender: FDA-Public Use
  Company Number: 2006076272

PATIENT
  Sex: Male

DRUGS (2)
  1. BEXTRA [Suspect]
     Dates: start: 20030729, end: 20031130
  2. VIOXX [Suspect]
     Dates: start: 20010711, end: 20030901

REACTIONS (3)
  - CEREBROVASCULAR ACCIDENT [None]
  - DEEP VEIN THROMBOSIS [None]
  - PULMONARY EMBOLISM [None]
